FAERS Safety Report 7326518-X (Version None)
Quarter: 2011Q1

REPORT INFORMATION
  Report Type: 
  Country: None (occurrence: None)
  Receive Date: 20110302
  Receipt Date: 20110222
  Transmission Date: 20110831
  Serious: Yes (Hospitalization)
  Sender: FDA-Public Use
  Company Number: US-GENZYME-FABR-1001580

PATIENT
  Sex: Male

DRUGS (27)
  1. PROGRAF [Suspect]
     Dosage: 1 MG IN AM, 2 MG IN PM
  2. SEPTRA [Concomitant]
     Indication: PRODUCT USED FOR UNKNOWN INDICATION
  3. LASIX [Concomitant]
     Indication: PRODUCT USED FOR UNKNOWN INDICATION
  4. DIFLUCAN [Concomitant]
     Indication: PRODUCT USED FOR UNKNOWN INDICATION
  5. MULTIVITAMIN AND MINERAL [Concomitant]
     Indication: PRODUCT USED FOR UNKNOWN INDICATION
  6. VALCYTE [Concomitant]
     Indication: PRODUCT USED FOR UNKNOWN INDICATION
  7. DARVOCET [Concomitant]
     Indication: PRODUCT USED FOR UNKNOWN INDICATION
  8. ZYRTEC-D 12 HOUR [Concomitant]
     Indication: PRODUCT USED FOR UNKNOWN INDICATION
  9. AVODART [Concomitant]
     Indication: PRODUCT USED FOR UNKNOWN INDICATION
  10. PROGRAF [Suspect]
     Dosage: 1.5 MG, BID
  11. PROTONIX [Concomitant]
     Indication: GASTROOESOPHAGEAL REFLUX DISEASE
  12. FLONASE [Concomitant]
     Indication: PRODUCT USED FOR UNKNOWN INDICATION
  13. MYFORTIC [Concomitant]
     Indication: PRODUCT USED FOR UNKNOWN INDICATION
  14. PREDNISONE TAB [Concomitant]
     Indication: PRODUCT USED FOR UNKNOWN INDICATION
  15. ASPIRIN [Concomitant]
     Indication: PRODUCT USED FOR UNKNOWN INDICATION
  16. METOPROLOL [Concomitant]
     Indication: PRODUCT USED FOR UNKNOWN INDICATION
  17. VITAMIN B COMPLEX CAP [Concomitant]
     Indication: PRODUCT USED FOR UNKNOWN INDICATION
  18. FABRAZYME [Suspect]
     Indication: FABRY'S DISEASE
     Dosage: 90 MG, Q2W
     Route: 042
     Dates: start: 20030101
  19. PROGRAF [Suspect]
     Indication: RENAL TRANSPLANT
     Dosage: 1 MG, BID
     Dates: start: 20060701
  20. SENOKOT [Concomitant]
     Indication: PRODUCT USED FOR UNKNOWN INDICATION
  21. ADVAIR DISKUS 100/50 [Concomitant]
     Indication: PRODUCT USED FOR UNKNOWN INDICATION
  22. TOPROL-XL [Concomitant]
     Indication: PRODUCT USED FOR UNKNOWN INDICATION
  23. NASAL PREPARATIONS [Concomitant]
     Indication: PRODUCT USED FOR UNKNOWN INDICATION
  24. CLOTRIMAZOLE [Concomitant]
     Indication: PRODUCT USED FOR UNKNOWN INDICATION
  25. FLOMAX [Concomitant]
     Indication: PRODUCT USED FOR UNKNOWN INDICATION
  26. PERITONEAL DIALYTICS [Concomitant]
     Indication: PRODUCT USED FOR UNKNOWN INDICATION
  27. POLY-IRON [Concomitant]
     Indication: PRODUCT USED FOR UNKNOWN INDICATION

REACTIONS (4)
  - SEPSIS [None]
  - DEEP VEIN THROMBOSIS [None]
  - PULMONARY EMBOLISM [None]
  - ATELECTASIS [None]
